FAERS Safety Report 6913010-7 (Version None)
Quarter: 2010Q3

REPORT INFORMATION
  Report Type: 
  Country: None (occurrence: None)
  Receive Date: 20100806
  Receipt Date: 20090524
  Transmission Date: 20110219
  Serious: No
  Sender: FDA-Public Use
  Company Number: US-PFIZER INC-2009198161

PATIENT
  Sex: Male
  Weight: 74.83 kg

DRUGS (11)
  1. VFEND [Suspect]
     Indication: SYSTEMIC CANDIDA
     Dosage: 180 MG, 1X/DAY
     Route: 042
     Dates: start: 20090407
  2. LACTULOSE [Concomitant]
  3. REGLAN [Concomitant]
  4. KEFLEX [Concomitant]
  5. OXYCODONE [Concomitant]
  6. HYDROMORPHONE [Concomitant]
  7. HEPARIN [Concomitant]
  8. VISTARIL [Concomitant]
  9. BENADRYL [Concomitant]
  10. ZOFRAN [Concomitant]
  11. PROTONIX [Concomitant]

REACTIONS (1)
  - BLOOD CREATINE INCREASED [None]
